FAERS Safety Report 7588024-7 (Version None)
Quarter: 2011Q3

REPORT INFORMATION
  Report Type: 
  Country: None (occurrence: None)
  Receive Date: 20110705
  Receipt Date: 20110629
  Transmission Date: 20111222
  Serious: No
  Sender: FDA-Public Use
  Company Number: US-PFIZER INC-2011146067

PATIENT
  Age: 33 Year
  Sex: Female

DRUGS (4)
  1. CHANTIX [Suspect]
     Indication: SMOKING CESSATION THERAPY
     Dosage: 0.5 MG, 1X/DAY
     Route: 048
     Dates: start: 20110501
  2. BUPROPION [Concomitant]
     Dosage: UNK
  3. IBUPROFEN [Concomitant]
     Dosage: UNK
  4. XANAX [Concomitant]
     Dosage: UNK

REACTIONS (1)
  - DRUG SCREEN POSITIVE [None]
